FAERS Safety Report 25816797 (Version 2)
Quarter: 2025Q3

REPORT INFORMATION
  Report Type: Spontaneous
  Country: US (occurrence: US)
  Receive Date: 20250918
  Receipt Date: 20250919
  Transmission Date: 20251021
  Serious: No
  Sender: HETERO
  Company Number: US-BMS-IMIDS-REMS_SI-1757345344157

PATIENT
  Sex: Male

DRUGS (1)
  1. LENALIDOMIDE [Suspect]
     Active Substance: LENALIDOMIDE
     Indication: Product used for unknown indication
     Route: 048
     Dates: start: 2023

REACTIONS (1)
  - Platelet count decreased [Unknown]
